FAERS Safety Report 6298614-X (Version None)
Quarter: 2009Q3

REPORT INFORMATION
  Report Type: 
  Country: None (occurrence: None)
  Receive Date: 20090803
  Receipt Date: 20090724
  Transmission Date: 20100115
  Serious: Yes (Hospitalization)
  Sender: FDA-Public Use
  Company Number: 20097150

PATIENT
  Sex: Female

DRUGS (1)
  1. LIORESAL [Suspect]
     Indication: MUSCLE SPASTICITY
     Dosage: MCG,  DAILY, INTRATHECAL
     Route: 037

REACTIONS (6)
  - ANAESTHETIC COMPLICATION [None]
  - MUSCLE RIGIDITY [None]
  - NO THERAPEUTIC RESPONSE [None]
  - OVERDOSE [None]
  - UNRESPONSIVE TO STIMULI [None]
  - WITHDRAWAL SYNDROME [None]
